FAERS Safety Report 8543399-7 (Version None)
Quarter: 2012Q3

REPORT INFORMATION
  Report Type: 
  Country: None (occurrence: None)
  Receive Date: 20120727
  Receipt Date: 20120716
  Transmission Date: 20120928
  Serious: Yes (Hospitalization, Other)
  Sender: FDA-Public Use
  Company Number: US-BAYER-2011-036937

PATIENT
  Age: 27 Year
  Sex: Female

DRUGS (10)
  1. SERTRALINE HYDROCHLORIDE [Concomitant]
     Dosage: UNK
     Dates: start: 20090429, end: 20091030
  2. CLONAZEPAM [Concomitant]
     Dosage: UNK
     Dates: start: 20090331, end: 20090904
  3. YAZ [Suspect]
     Indication: CONTRACEPTION
     Dosage: UNK
     Route: 048
     Dates: start: 20060101, end: 20090930
  4. YASMIN [Suspect]
     Indication: CONTRACEPTION
     Dosage: UNK
     Route: 048
     Dates: start: 20040801, end: 20060101
  5. KLONOPIN [Concomitant]
  6. AMPHETAMINE AND DEXTROAMPHETAMINE SALTS [Concomitant]
     Dosage: 30 MG, UNK
     Dates: start: 20090429, end: 20120507
  7. OXYCODONE HCL AND ACETAMINOPHEN [Concomitant]
     Dosage: 5325 UNK, UNK
     Dates: start: 20090604, end: 20090710
  8. HYDROCODONE BITARTRATE [Concomitant]
     Dosage: UNK
     Dates: start: 20090606, end: 20090611
  9. ADDERALL XR 10 [Concomitant]
     Indication: ATTENTION DEFICIT/HYPERACTIVITY DISORDER
     Dosage: UNK
     Dates: start: 20070101, end: 20120101
  10. ZOLOFT [Concomitant]

REACTIONS (14)
  - CHOLECYSTITIS ACUTE [None]
  - GALLBLADDER PAIN [None]
  - PERFORATION BILE DUCT [None]
  - PROCEDURAL COMPLICATION [None]
  - GALLBLADDER DISORDER [None]
  - MUSCLE SPASMS [None]
  - HEPATITIS [None]
  - PAIN [None]
  - MALAISE [None]
  - PYREXIA [None]
  - URINARY TRACT INFECTION [None]
  - ACTIVITIES OF DAILY LIVING IMPAIRED [None]
  - DEPRESSION [None]
  - NAUSEA [None]
